FAERS Safety Report 12475847 (Version 1)
Quarter: 2016Q2

REPORT INFORMATION
  Report Type: Spontaneous
  Country: GB (occurrence: GB)
  Receive Date: 20160617
  Receipt Date: 20160617
  Transmission Date: 20160815
  Serious: Yes (Hospitalization)
  Sender: FDA-Public Use
  Company Number: GB-TEVA-667077ACC

PATIENT
  Age: 88 Year

DRUGS (13)
  1. DUTASTERIDE. [Concomitant]
     Active Substance: DUTASTERIDE
  2. ASPIRIN. [Concomitant]
     Active Substance: ASPIRIN
  3. TERBUTALINE [Concomitant]
     Active Substance: TERBUTALINE
  4. SYMBICORT [Concomitant]
     Active Substance: BUDESONIDE\FORMOTEROL FUMARATE DIHYDRATE
     Dosage: 400UG/12UG PER DOSE
     Route: 055
  5. OMEPRAZOLE. [Concomitant]
     Active Substance: OMEPRAZOLE
  6. ATORVASTATIN [Concomitant]
     Active Substance: ATORVASTATIN
  7. FERROUS SULFATE. [Concomitant]
     Active Substance: FERROUS SULFATE
  8. TAMSULOSIN [Concomitant]
     Active Substance: TAMSULOSIN
  9. PARACETAMOL [Concomitant]
     Active Substance: ACETAMINOPHEN
  10. MIRTAZAPINE. [Concomitant]
     Active Substance: MIRTAZAPINE
  11. SENNA [Concomitant]
     Active Substance: SENNA LEAF\SENNOSIDES\SENNOSIDES A AND B
  12. FUROSEMIDE. [Suspect]
     Active Substance: FUROSEMIDE
     Dosage: 20 MILLIGRAM DAILY;
  13. TIOTROPIUM [Concomitant]
     Active Substance: TIOTROPIUM

REACTIONS (1)
  - Acute kidney injury [Unknown]
